FAERS Safety Report 5106410-1 (Version None)
Quarter: 2006Q3

REPORT INFORMATION
  Report Type: 
  Country: None (occurrence: None)
  Receive Date: 20060918
  Receipt Date: 20060912
  Transmission Date: 20061208
  Serious: Yes (Disabling, Other)
  Sender: FDA-Public Use
  Company Number: JP-SP-2006-02443

PATIENT
  Age: 57 Year
  Sex: Male

DRUGS (2)
  1. IMMUCYST [Suspect]
     Indication: BLADDER CANCER
     Dosage: TOTAL DOSE: 567 MG
     Route: 043
     Dates: start: 20060125, end: 20060308
  2. IMMUCYST [Suspect]
     Dosage: TOTAL DOSE: 567 MG
     Route: 043
     Dates: start: 20060125, end: 20060308

REACTIONS (2)
  - DYSURIA [None]
  - POLLAKIURIA [None]
